FAERS Safety Report 5575987-4 (Version None)
Quarter: 2007Q4

REPORT INFORMATION
  Report Type: 
  Country: None (occurrence: None)
  Receive Date: 20071228
  Receipt Date: 20071219
  Transmission Date: 20080405
  Serious: Yes (Other)
  Sender: FDA-Public Use
  Company Number: US-TYCO HEALTHCARE/MALLINCKRODT-T200701585

PATIENT

DRUGS (1)
  1. OPTIMARK IN GLASS VIALS [Suspect]
     Dosage: UNK, SINGLE
     Dates: start: 20071214, end: 20071214

REACTIONS (3)
  - FEELING ABNORMAL [None]
  - LETHARGY [None]
  - UNRESPONSIVE TO STIMULI [None]
